FAERS Safety Report 23467485 (Version 1)
Quarter: 2024Q1

REPORT INFORMATION
  Report Type: Spontaneous
  Country: US (occurrence: None)
  Receive Date: 20240201
  Receipt Date: 20240201
  Transmission Date: 20240410
  Serious: Yes (Other)
  Sender: FDA-Public Use
  Company Number: None

PATIENT
  Age: 73 Year
  Sex: Female
  Weight: 76.59 kg

DRUGS (15)
  1. REVLIMID [Suspect]
     Active Substance: LENALIDOMIDE
     Indication: Follicular lymphoma stage III
     Dosage: FREQUENCY : DAILY;?
     Route: 048
     Dates: start: 20230228
  2. VENLAFAXINE HYDROCHLORIDE [Concomitant]
     Active Substance: VENLAFAXINE HYDROCHLORIDE
  3. levothyroxine 25 mcg tablet [Concomitant]
  4. Lidocaine Viscous 2 % mucosal solution [Concomitant]
  5. Zinc-220 50 mg zinc (220 mg) capsule [Concomitant]
  6. ondansetron 8 mg disintegrating tablet [Concomitant]
  7. metoprolol succinate ER 25 mg tablet,extended release 24 hr [Concomitant]
  8. solifenacin 10 mg tablet [Concomitant]
  9. buspirone 15 mg tablet [Concomitant]
  10. albuterol sulfate 2.5 mg/3 mL (0.083 %) solution for nebulization [Concomitant]
  11. CYCLOBENZAPRINE [Concomitant]
     Active Substance: CYCLOBENZAPRINE
  12. pantoprazole 40 mg tablet,delayed release [Concomitant]
  13. fluticasone 50 mcg/actuation nasal spray,suspension [Concomitant]
  14. simvastatin 40 mg tablet [Concomitant]
  15. Vitamin D3 2,000 unit tablet [Concomitant]

REACTIONS (1)
  - Neutrophil count abnormal [None]

NARRATIVE: CASE EVENT DATE: 20240201
